FAERS Safety Report 18004549 (Version 1)
Quarter: 2020Q3

REPORT INFORMATION
  Report Type: Report from Study
  Country: ES (occurrence: ES)
  Receive Date: 20200710
  Receipt Date: 20200710
  Transmission Date: 20201103
  Serious: Yes (Death, Other)
  Sender: FDA-Public Use
  Company Number: ES-ROCHE-2635413

PATIENT

DRUGS (3)
  1. GRAZOPREVIR. [Suspect]
     Active Substance: GRAZOPREVIR
     Indication: CHRONIC HEPATITIS C
     Route: 065
  2. RIBAVIRIN. [Suspect]
     Active Substance: RIBAVIRIN
     Indication: CHRONIC HEPATITIS C
     Route: 065
  3. ELBASVIR. [Suspect]
     Active Substance: ELBASVIR
     Indication: CHRONIC HEPATITIS C
     Route: 065

REACTIONS (8)
  - Herpes zoster [Unknown]
  - Mental disorder [Unknown]
  - Cardiac failure [Fatal]
  - Hepatic failure [Fatal]
  - Anaemia [Recovered/Resolved]
  - Gastrointestinal disorder [Unknown]
  - Blood bilirubin increased [Unknown]
  - Pneumonia [Fatal]
